FAERS Safety Report 8483516-0 (Version None)
Quarter: 2012Q3

REPORT INFORMATION
  Report Type: 
  Country: None (occurrence: None)
  Receive Date: 20120702
  Receipt Date: 20120628
  Transmission Date: 20120928
  Serious: Yes (Other)
  Sender: FDA-Public Use
  Company Number: MX-MERCK-1107MEX00002

PATIENT
  Age: 8 Year
  Sex: Female
  Weight: 25 kg

DRUGS (2)
  1. FLUTICASONE FUROATE [Concomitant]
     Indication: RHINITIS ALLERGIC
     Route: 055
     Dates: start: 20110401, end: 20110501
  2. SINGULAIR [Suspect]
     Indication: RHINITIS ALLERGIC
     Route: 048
     Dates: start: 20110401, end: 20110610

REACTIONS (3)
  - AUTOIMMUNE THROMBOCYTOPENIA [None]
  - THROMBOTIC THROMBOCYTOPENIC PURPURA [None]
  - THROMBOCYTOPENIA [None]
